FAERS Safety Report 9112725 (Version 1)
Quarter: 2013Q1

REPORT INFORMATION
  Report Type: Spontaneous
  Country: US (occurrence: US)
  Receive Date: 20130211
  Receipt Date: 20130211
  Transmission Date: 20140127
  Serious: No
  Sender: FDA-Public Use
  Company Number: US-PFIZER INC-2013051021

PATIENT
  Sex: Female
  Weight: 119 kg

DRUGS (4)
  1. ALAVERT [Suspect]
     Indication: HYPERSENSITIVITY
     Dosage: 10 MG, 1X/DAY
     Route: 048
  2. METOPROLOL TARTRATE [Suspect]
     Indication: HEART RATE ABNORMAL
     Dosage: 25 MG, 2X/DAY
  3. ADVAIR DISKUS [Concomitant]
     Indication: SLEEP APNOEA SYNDROME
     Dosage: 350MG ONE PUFF, DAILY
  4. ADVAIR DISKUS [Concomitant]
     Indication: DYSPNOEA

REACTIONS (1)
  - Heart rate abnormal [Unknown]
